FAERS Safety Report 4659100-3 (Version None)
Quarter: 2005Q2

REPORT INFORMATION
  Report Type: 
  Country: None (occurrence: None)
  Receive Date: 20050502
  Receipt Date: 20050208
  Transmission Date: 20051028
  Serious: No
  Sender: FDA-Public Use
  Company Number: 200418662US

PATIENT
  Sex: Female
  Weight: 50 kg

DRUGS (3)
  1. KETEK [Suspect]
     Indication: SINUSITIS
     Dosage: 500 (2 TABLETS) MG QD PO
     Route: 048
     Dates: start: 20041001, end: 20041001
  2. KETEK [Suspect]
     Indication: STREPTOCOCCAL INFECTION
     Dosage: 500 (2 TABLETS) MG QD PO
     Route: 048
     Dates: start: 20041001, end: 20041001
  3. AMBIEN [Suspect]

REACTIONS (3)
  - DRUG EFFECT PROLONGED [None]
  - FATIGUE [None]
  - SLUGGISHNESS [None]
